FAERS Safety Report 16034881 (Version 1)
Quarter: 2019Q1

REPORT INFORMATION
  Report Type: Spontaneous
  Country: US (occurrence: US)
  Receive Date: 20190205
  Receipt Date: 20190205
  Transmission Date: 20190418
  Serious: Yes (Death, Disabling)
  Sender: FDA-Public Use
  Company Number: None

PATIENT
  Age: 73 Year
  Sex: Female
  Weight: 67.13 kg

DRUGS (8)
  1. VITAMIN B COMPLEX [Concomitant]
     Active Substance: CYANOCOBALAMIN\DEXPANTHENOL\NIACINAMIDE\PYRIDOXINE HYDROCHLORIDE\RIBOFLAVIN 5^-PHOSPHATE SODIUM\THIAMINE HYDROCHLORIDE\VITAMIN B COMPLEX
  2. AZITHROMYCIN ANHYDROUS. [Suspect]
     Active Substance: AZITHROMYCIN ANHYDROUS
     Indication: COUGH
     Dosage: QUANTITY:250 MG MILLIGRAM(S)?
     Route: 048
     Dates: start: 20181109, end: 20181111
  3. LATANOPROST. [Concomitant]
     Active Substance: LATANOPROST
  4. COD LIVER OIL [Concomitant]
     Active Substance: COD LIVER OIL
  5. VITAMIN C [Concomitant]
     Active Substance: ASCORBIC ACID
  6. HYZAAR [Concomitant]
     Active Substance: HYDROCHLOROTHIAZIDE\LOSARTAN POTASSIUM
  7. AMLODIPINE [Concomitant]
     Active Substance: AMLODIPINE BESYLATE
  8. ASA [Concomitant]
     Active Substance: ASPIRIN

REACTIONS (3)
  - Pneumonia [None]
  - Rash [None]
  - Rash pruritic [None]

NARRATIVE: CASE EVENT DATE: 20181109
